FAERS Safety Report 6270611-X (Version None)
Quarter: 2009Q3

REPORT INFORMATION
  Report Type: 
  Country: None (occurrence: None)
  Receive Date: 20090716
  Receipt Date: 20090702
  Transmission Date: 20100115
  Serious: Yes (Disabling, Other)
  Sender: FDA-Public Use
  Company Number: US-PFIZER INC-2009236242

PATIENT
  Sex: Female
  Weight: 79 kg

DRUGS (5)
  1. PROVERA [Suspect]
     Indication: HORMONE REPLACEMENT THERAPY
     Dosage: UNK
     Dates: start: 19981109
  2. ESTRACE [Suspect]
     Indication: HORMONE REPLACEMENT THERAPY
     Dosage: UNK
     Dates: start: 19981109
  3. PREMPRO [Suspect]
     Indication: HORMONE REPLACEMENT THERAPY
     Dosage: UNK
     Dates: start: 19970201
  4. PREMARIN [Suspect]
     Indication: HORMONE REPLACEMENT THERAPY
  5. ASPIRIN [Concomitant]
     Dosage: UNK

REACTIONS (3)
  - CARDIAC FIBRILLATION [None]
  - ENDOMETRIAL CANCER [None]
  - OVARIAN CANCER [None]
